FAERS Safety Report 25539543 (Version 1)
Quarter: 2025Q3

REPORT INFORMATION
  Report Type: Spontaneous
  Country: US (occurrence: US)
  Receive Date: 20250710
  Receipt Date: 20250710
  Transmission Date: 20251021
  Serious: Yes (Other)
  Sender: ELI LILLY AND COMPANY
  Company Number: US-ELI_LILLY_AND_COMPANY-US202506026487

PATIENT

DRUGS (1)
  1. MOUNJARO [Suspect]
     Active Substance: TIRZEPATIDE
     Indication: Product used for unknown indication
     Route: 065

REACTIONS (7)
  - Blindness unilateral [Unknown]
  - Weight decreased [Unknown]
  - Alopecia [Unknown]
  - Fatigue [Unknown]
  - Constipation [Unknown]
  - Abdominal distension [Unknown]
  - Nausea [Unknown]
